FAERS Safety Report 9147571 (Version 2)
Quarter: 2013Q2

REPORT INFORMATION
  Report Type: Spontaneous
  Country: US (occurrence: US)
  Receive Date: 20130307
  Receipt Date: 20130403
  Transmission Date: 20140414
  Serious: No
  Sender: FDA-Public Use
  Company Number: US-ASTRAZENECA-2013SE12664

PATIENT
  Age: 60 Year
  Sex: Female
  Weight: 60.3 kg

DRUGS (3)
  1. CRESTOR [Suspect]
     Indication: BLOOD CHOLESTEROL ABNORMAL
     Dosage: TAKES IT ON AND OFF, AT ONE TIME WAS TAKING IT DAILY AND THEN STARTED TAKING IT 3 TIMES A WEEK
     Route: 048
     Dates: end: 20130217
  2. MICROBID [Suspect]
     Route: 065
  3. SEGRID OTC [Concomitant]
     Indication: GASTROOESOPHAGEAL REFLUX DISEASE

REACTIONS (4)
  - Gastrooesophageal reflux disease [Unknown]
  - Muscle spasms [Unknown]
  - Memory impairment [Unknown]
  - Off label use [Unknown]
